FAERS Safety Report 4702192-3 (Version None)
Quarter: 2005Q2

REPORT INFORMATION
  Report Type: 
  Country: None (occurrence: None)
  Receive Date: 20050628
  Receipt Date: 20050628
  Transmission Date: 20051028
  Serious: Yes (Other)
  Sender: FDA-Public Use
  Company Number: None

PATIENT
  Sex: Female
  Weight: 41.9577 kg

DRUGS (13)
  1. SYNTHROID [Suspect]
     Indication: HYPOTHYROIDISM
     Dosage: 0.125 MG QD
     Dates: start: 20050101, end: 20050601
  2. IMDUR [Concomitant]
  3. LIPITOR [Concomitant]
  4. ZOLOFT [Concomitant]
  5. HYDRALAZINE [Concomitant]
  6. ECOTRIN [Concomitant]
  7. ENALAPRIL MALEATE [Concomitant]
  8. KLONOPRIL [Concomitant]
  9. IRON [Concomitant]
  10. CYTOMEL [Concomitant]
  11. CATAPRES [Concomitant]
  12. HYDROMORPHINE [Concomitant]
  13. LASIX [Concomitant]

REACTIONS (3)
  - BLOOD THYROID STIMULATING HORMONE INCREASED [None]
  - DRUG INTERACTION [None]
  - PHARMACEUTICAL PRODUCT COMPLAINT [None]
